FAERS Safety Report 13547666 (Version 1)
Quarter: 2017Q2

REPORT INFORMATION
  Report Type: Spontaneous
  Country: BR (occurrence: BR)
  Receive Date: 20170515
  Receipt Date: 20170515
  Transmission Date: 20170830
  Serious: Yes (Hospitalization, Other)
  Sender: FDA-Public Use
  Company Number: BR-ASTRAZENECA-2014SE94866

PATIENT
  Age: 658 Month
  Sex: Male
  Weight: 83 kg

DRUGS (6)
  1. CRESTOR [Suspect]
     Active Substance: ROSUVASTATIN CALCIUM
     Indication: STENT PLACEMENT
     Route: 048
     Dates: start: 20141118
  2. BRILINTA [Suspect]
     Active Substance: TICAGRELOR
     Indication: STENT PLACEMENT
     Route: 048
     Dates: start: 20141118, end: 2015
  3. ATENOLOL. [Suspect]
     Active Substance: ATENOLOL
     Indication: STENT PLACEMENT
     Route: 048
     Dates: start: 20141118
  4. RIVOTRIL [Concomitant]
     Active Substance: CLONAZEPAM
     Dosage: 2.0MG AS REQUIRED
     Route: 048
  5. SEROQUEL [Suspect]
     Active Substance: QUETIAPINE FUMARATE
     Indication: SEDATIVE THERAPY
     Route: 048
     Dates: start: 20141118
  6. ASPIRINA PREVENT [Concomitant]
     Active Substance: ASPIRIN
     Indication: STENT PLACEMENT
     Route: 048
     Dates: start: 20141118

REACTIONS (4)
  - Coronary artery occlusion [Recovered/Resolved]
  - Product use in unapproved indication [Not Recovered/Not Resolved]
  - Somnolence [Not Recovered/Not Resolved]
  - Off label use [Not Recovered/Not Resolved]

NARRATIVE: CASE EVENT DATE: 201411
